FAERS Safety Report 9246849 (Version 1)
Quarter: 2013Q2

REPORT INFORMATION
  Report Type: Spontaneous
  Country: US (occurrence: US)
  Receive Date: 20130422
  Receipt Date: 20130422
  Transmission Date: 20140414
  Serious: Yes (Death, Hospitalization)
  Sender: FDA-Public Use
  Company Number: US-GLAXOSMITHKLINE-A0690181A

PATIENT
  Age: 61 Year
  Sex: Female
  Weight: 55 kg

DRUGS (9)
  1. AVANDIA [Suspect]
     Indication: TYPE 2 DIABETES MELLITUS
     Dosage: 8MG PER DAY
     Route: 048
     Dates: start: 20031016, end: 20070320
  2. GLUCOPHAGE [Concomitant]
     Dates: start: 20040813, end: 200409
  3. GLUCOTROL [Concomitant]
     Dates: start: 20040708, end: 200408
  4. GLUCOTROL XL [Concomitant]
     Dates: start: 20040524, end: 200409
  5. POTASSIUM [Concomitant]
  6. CARDURA [Concomitant]
  7. PREMARIN [Concomitant]
  8. FOSAMAX [Concomitant]
  9. METAMUCIL [Concomitant]

REACTIONS (3)
  - Sepsis [Fatal]
  - Myocardial infarction [Unknown]
  - Cardiac failure congestive [Unknown]
